FAERS Safety Report 9065951 (Version 2)
Quarter: 2013Q1

REPORT INFORMATION
  Report Type: Spontaneous
  Country: JP (occurrence: JP)
  Receive Date: 20130214
  Receipt Date: 20130328
  Transmission Date: 20140127
  Serious: Yes (Life-Threatening, Hospitalization)
  Sender: FDA-Public Use
  Company Number: JP-COVIDIEN/TYCO HEALTHCARE/MALLINCKRODT-T201300392

PATIENT
  Age: 63 Year
  Sex: Female
  Weight: 76.5 kg

DRUGS (1)
  1. OPTIRAY [Suspect]
     Indication: COMPUTERISED TOMOGRAM
     Dosage: 56 ML, SINGLE
     Route: 042
     Dates: start: 20130201, end: 20130201

REACTIONS (1)
  - Anaphylactic shock [Recovering/Resolving]
